FAERS Safety Report 21729050 (Version 1)
Quarter: 2022Q4

REPORT INFORMATION
  Report Type: Report from Study
  Country: US (occurrence: US)
  Receive Date: 20221214
  Receipt Date: 20221214
  Transmission Date: 20230113
  Serious: Yes (Life-Threatening, Hospitalization, Other)
  Sender: FDA-Public Use
  Company Number: US-002147023-NVSC2022US288689

PATIENT
  Age: 39 Year
  Sex: Male

DRUGS (1)
  1. KESIMPTA [Suspect]
     Active Substance: OFATUMUMAB
     Indication: Multiple sclerosis
     Dosage: UNK
     Route: 058
     Dates: start: 20210823

REACTIONS (10)
  - Pneumothorax [Unknown]
  - Psoriasis [Unknown]
  - Illness [Recovered/Resolved]
  - Stomatitis [Recovered/Resolved]
  - Oral bacterial infection [Recovered/Resolved]
  - Oral fungal infection [Recovered/Resolved]
  - Cardiac disorder [Unknown]
  - Spinal pain [Unknown]
  - Gait disturbance [Unknown]
  - Fungal infection [Unknown]

NARRATIVE: CASE EVENT DATE: 20210801
